FAERS Safety Report 14578666 (Version 1)
Quarter: 2018Q1

REPORT INFORMATION
  Report Type: Spontaneous
  Country: GB (occurrence: GB)
  Receive Date: 20180227
  Receipt Date: 20180227
  Transmission Date: 20180509
  Serious: Yes (Hospitalization)
  Sender: FDA-Public Use
  Company Number: GB-PFIZER INC-2018080100

PATIENT
  Age: 65 Year
  Sex: Male
  Weight: 76.2 kg

DRUGS (6)
  1. LISINOPRIL. [Concomitant]
     Active Substance: LISINOPRIL
     Dosage: 5 MG, ONCE DAILY
  2. SIMVASTATIN. [Concomitant]
     Active Substance: SIMVASTATIN
     Dosage: 20 MG, ONCE DAILY
  3. IBUPROFEN. [Suspect]
     Active Substance: IBUPROFEN
     Indication: BACK PAIN
     Dosage: 1200 MG, ONCE DAILY
     Route: 048
     Dates: start: 20171207, end: 20180117
  4. OMEPRAZOLE. [Concomitant]
     Active Substance: OMEPRAZOLE
     Dosage: 20 MG, ONCE DAILY
  5. MEZAVANT [Concomitant]
     Active Substance: MESALAMINE
     Dosage: UNK
  6. BUDESONIDE. [Concomitant]
     Active Substance: BUDESONIDE
     Dosage: 2 MG, ONCE DAILY, AT NIGHT
     Route: 054

REACTIONS (9)
  - Condition aggravated [Recovering/Resolving]
  - Proctalgia [Unknown]
  - Abdominal distension [Unknown]
  - Colitis ulcerative [Recovering/Resolving]
  - Product use issue [Unknown]
  - Rectal haemorrhage [Unknown]
  - Rectal abscess [Unknown]
  - Proctitis [Unknown]
  - Mucous stools [Unknown]

NARRATIVE: CASE EVENT DATE: 20171207
